FAERS Safety Report 13419339 (Version 2)
Quarter: 2017Q2

REPORT INFORMATION
  Report Type: Report from Study
  Country: MX (occurrence: MX)
  Receive Date: 20170407
  Receipt Date: 20170411
  Transmission Date: 20170830
  Serious: Yes (Other)
  Sender: FDA-Public Use
  Company Number: MX-UCBSA-2017012839

PATIENT
  Age: 38 Year
  Sex: Male
  Weight: 74 kg

DRUGS (11)
  1. DEPAKENE [Concomitant]
     Active Substance: VALPROIC ACID
     Indication: PRODUCT USED FOR UNKNOWN INDICATION
  2. LACOSAMIDE. [Suspect]
     Active Substance: LACOSAMIDE
     Dosage: 50 MG, ONCE DAILY (QD)
     Route: 048
     Dates: start: 201702, end: 201702
  3. LACOSAMIDE. [Suspect]
     Active Substance: LACOSAMIDE
     Dosage: 50 MG TABLET IN THE MORNING, 1 TABLET 50 MG IN THE EVENING AND 100 MG IN THE EVENING.
     Route: 048
     Dates: start: 201703
  4. LACOSAMIDE. [Suspect]
     Active Substance: LACOSAMIDE
     Dosage: 25 MG, ONCE DAILY (QD)
     Route: 048
     Dates: start: 20170130, end: 201702
  5. LACOSAMIDE. [Suspect]
     Active Substance: LACOSAMIDE
     Dosage: HALF TABLET OF 50 MG IN THE MORNING AND ONE TABLET OF 50 MG IN THE EVENING
     Route: 048
     Dates: start: 201702, end: 201702
  6. LAMICTAL [Concomitant]
     Active Substance: LAMOTRIGINE
     Dosage: 100 MG, 2X/DAY (BID)
  7. LAMICTAL [Concomitant]
     Active Substance: LAMOTRIGINE
     Indication: PRODUCT USED FOR UNKNOWN INDICATION
     Dosage: 100 MG, 3X/DAY (TID); (100 MG/ 8HRS)
  8. TEGRETOL [Concomitant]
     Active Substance: CARBAMAZEPINE
     Indication: PRODUCT USED FOR UNKNOWN INDICATION
  9. LACOSAMIDE. [Suspect]
     Active Substance: LACOSAMIDE
     Dosage: 50 MG, 2X/DAY (BID); (50 MG / 12HRS)
     Route: 048
     Dates: start: 201702, end: 2017
  10. ZEBINIX [Concomitant]
     Active Substance: ESLICARBAZEPINE ACETATE
     Indication: EPILEPSY
     Dosage: 800 MG, 3X/DAY (TID); (800MG / 8HRS)
     Dates: start: 201509, end: 2016
  11. LACOSAMIDE. [Suspect]
     Active Substance: LACOSAMIDE
     Indication: EPILEPSY
     Dosage: 50 MG, 3X/DAY (TID); (50MG/8HRS)
     Route: 048
     Dates: start: 2014

REACTIONS (15)
  - Nausea [Unknown]
  - Gait disturbance [Unknown]
  - Motor dysfunction [Unknown]
  - Partial seizures [Unknown]
  - Panic attack [Unknown]
  - Intentional product misuse [Unknown]
  - Loss of consciousness [Unknown]
  - Visual impairment [Unknown]
  - Speech disorder [Unknown]
  - Dizziness [Unknown]
  - Vision blurred [Unknown]
  - Seizure [Unknown]
  - Drug intolerance [Unknown]
  - Fatigue [Unknown]
  - Inappropriate schedule of drug administration [Unknown]

NARRATIVE: CASE EVENT DATE: 2014
